FAERS Safety Report 14855154 (Version 1)
Quarter: 2018Q2

REPORT INFORMATION
  Report Type: Spontaneous
  Country: US (occurrence: US)
  Receive Date: 20180507
  Receipt Date: 20180507
  Transmission Date: 20180711
  Serious: No
  Sender: FDA-Public Use
  Company Number: US-ROCHE-1930615

PATIENT
  Age: 69 Year
  Sex: Female

DRUGS (3)
  1. ESBRIET [Suspect]
     Active Substance: PIRFENIDONE
     Indication: PRODUCT USED FOR UNKNOWN INDICATION
     Dosage: 1 PILL
     Route: 048
     Dates: end: 20170501
  2. ESBRIET [Suspect]
     Active Substance: PIRFENIDONE
     Dosage: 2 CAPSULES
     Route: 048
     Dates: start: 20170502, end: 20170502
  3. ESBRIET [Suspect]
     Active Substance: PIRFENIDONE
     Dosage: 1 CAPSULE
     Route: 048
     Dates: start: 20170503

REACTIONS (1)
  - Vomiting [Unknown]

NARRATIVE: CASE EVENT DATE: 20170502
